FAERS Safety Report 11962502 (Version 1)
Quarter: 2016Q1

REPORT INFORMATION
  Report Type: Spontaneous
  Country: US (occurrence: US)
  Receive Date: 20160126
  Receipt Date: 20160126
  Transmission Date: 20160526
  Serious: No
  Sender: FDA-Public Use
  Company Number: US-BAYER-2016-015009

PATIENT
  Age: 3 Year
  Sex: Female
  Weight: 13.61 kg

DRUGS (1)
  1. CHILDREN CLARITIN ALLERGY [Suspect]
     Active Substance: LORATADINE
     Dosage: 5 MG, UNK
     Dates: start: 20160121

REACTIONS (1)
  - Product use issue [None]

NARRATIVE: CASE EVENT DATE: 20160122
